FAERS Safety Report 12930152 (Version 1)
Quarter: 2016Q4

REPORT INFORMATION
  Report Type: Spontaneous
  Country: US (occurrence: US)
  Receive Date: 20161110
  Receipt Date: 20161110
  Transmission Date: 20170207
  Serious: Yes (Other)
  Sender: FDA-Public Use
  Company Number: US-PURDUE-USA-2016-0134582

PATIENT
  Age: 45 Year
  Sex: Male
  Weight: 86.17 kg

DRUGS (6)
  1. AMBIEN [Concomitant]
     Active Substance: ZOLPIDEM TARTRATE
     Indication: SLEEP DISORDER
     Dosage: UNK
     Route: 065
  2. OXYCODONE HYDROCHLORIDE (SIMILAR TO NDA 22-272) [Suspect]
     Active Substance: OXYCODONE HYDROCHLORIDE
     Dosage: UNK
     Route: 048
     Dates: start: 201603
  3. OXYCODONE HYDROCHLORIDE (SIMILAR TO NDA 22-272) [Suspect]
     Active Substance: OXYCODONE HYDROCHLORIDE
     Indication: PAIN
     Dosage: UNK, PM
     Route: 048
  4. LYRICA [Concomitant]
     Active Substance: PREGABALIN
     Indication: DIABETIC NEUROPATHY
     Dosage: 75 MG, TID
     Route: 048
  5. HYDROCODONE BITARTRATE (SIMILAR TO NDA 206627) [Suspect]
     Active Substance: HYDROCODONE BITARTRATE
     Indication: PRODUCT USED FOR UNKNOWN INDICATION
     Dosage: UNK
     Route: 048
  6. LYRICA [Concomitant]
     Active Substance: PREGABALIN
     Dosage: 50 MG, TID
     Route: 048
     Dates: start: 201609

REACTIONS (10)
  - Nail operation [Unknown]
  - Agitation [Not Recovered/Not Resolved]
  - Personality change [Not Recovered/Not Resolved]
  - Anger [Not Recovered/Not Resolved]
  - Drug ineffective [Not Recovered/Not Resolved]
  - Unevaluable event [Unknown]
  - Abnormal behaviour [Not Recovered/Not Resolved]
  - Hypersomnia [Unknown]
  - Osteomyelitis [Unknown]
  - Mood swings [Not Recovered/Not Resolved]

NARRATIVE: CASE EVENT DATE: 201608
